FAERS Safety Report 21669906 (Version 4)
Quarter: 2023Q1

REPORT INFORMATION
  Report Type: Spontaneous
  Country: US (occurrence: US)
  Receive Date: 20221201
  Receipt Date: 20230331
  Transmission Date: 20230418
  Serious: Yes (Hospitalization)
  Sender: FDA-Public Use
  Company Number: US-KARYOPHARM-2022KPT001288

PATIENT

DRUGS (10)
  1. XPOVIO [Suspect]
     Active Substance: SELINEXOR
     Indication: Plasma cell myeloma
     Dosage: 100 MG, WEEKLY
     Route: 048
     Dates: start: 20221010, end: 202210
  2. XPOVIO [Suspect]
     Active Substance: SELINEXOR
     Dosage: 100 MG, WEEKLY
     Route: 048
     Dates: start: 202210, end: 202212
  3. XPOVIO [Suspect]
     Active Substance: SELINEXOR
     Dosage: 100 MG, WEEKLY
     Route: 048
     Dates: start: 202301, end: 202302
  4. XPOVIO [Suspect]
     Active Substance: SELINEXOR
     Dosage: 80 MG, WEEKLY
     Route: 048
     Dates: start: 202302, end: 20230222
  5. DEXAMETHASONE [Concomitant]
     Active Substance: DEXAMETHASONE
  6. NORCO [Concomitant]
     Active Substance: ACETAMINOPHEN\HYDROCODONE BITARTRATE
  7. ZOFRAN [Concomitant]
     Active Substance: ONDANSETRON HYDROCHLORIDE
  8. VELCADE [Concomitant]
     Active Substance: BORTEZOMIB
  9. XARELTO [Concomitant]
     Active Substance: RIVAROXABAN
  10. TAMSULOSIN [Concomitant]
     Active Substance: TAMSULOSIN

REACTIONS (11)
  - Hypotension [Unknown]
  - Fall [Unknown]
  - White blood cell count decreased [Unknown]
  - Depression [Unknown]
  - Back pain [Unknown]
  - Weight decreased [Not Recovered/Not Resolved]
  - Fatigue [Unknown]
  - Confusional state [Unknown]
  - Decreased appetite [Not Recovered/Not Resolved]
  - Asthenia [Not Recovered/Not Resolved]
  - Diarrhoea [Unknown]

NARRATIVE: CASE EVENT DATE: 20220101
